FAERS Safety Report 18363678 (Version 1)
Quarter: 2020Q4

REPORT INFORMATION
  Report Type: Spontaneous
  Country: PL (occurrence: PL)
  Receive Date: 20201009
  Receipt Date: 20201009
  Transmission Date: 20210114
  Serious: Yes (Hospitalization, Other)
  Sender: FDA-Public Use
  Company Number: PL-AUROBINDO-AUR-APL-2020-051186

PATIENT
  Age: 60 Year
  Sex: Male
  Weight: 104 kg

DRUGS (9)
  1. METFORMIN [Suspect]
     Active Substance: METFORMIN HYDROCHLORIDE
     Indication: PRODUCT USED FOR UNKNOWN INDICATION
     Dosage: UNK , ONCE A DAY (3X850MG/DAILY)
     Route: 065
  2. TORASEMIDE [Suspect]
     Active Substance: TORSEMIDE
     Indication: PRODUCT USED FOR UNKNOWN INDICATION
     Dosage: 10 MILLIGRAM, ONCE A DAY
     Route: 065
  3. SACUBITRIL;VALSARTAN [Suspect]
     Active Substance: SACUBITRIL\VALSARTAN
     Dosage: 102 MILLIGRAM, ONCE A DAY (51 MG, BID(49/51 MG)
     Route: 065
  4. METOPROLOL. [Suspect]
     Active Substance: METOPROLOL
     Indication: PRODUCT USED FOR UNKNOWN INDICATION
     Dosage: 50 MILLIGRAM, ONCE A DAY
     Route: 065
  5. GLICLAZIDE [Suspect]
     Active Substance: GLICLAZIDE
     Indication: PRODUCT USED FOR UNKNOWN INDICATION
     Dosage: 60 MILLIGRAM, ONCE A DAY
     Route: 065
  6. RAMIPRIL. [Suspect]
     Active Substance: RAMIPRIL
     Indication: PRODUCT USED FOR UNKNOWN INDICATION
     Dosage: 10 MILLIGRAM, ONCE A DAY
     Route: 065
  7. SACUBITRIL;VALSARTAN [Suspect]
     Active Substance: SACUBITRIL\VALSARTAN
     Indication: PRODUCT USED FOR UNKNOWN INDICATION
     Dosage: 206 MILLIGRAM, ONCE A DAY (103 MG, BID(97/103 MG TWICE DAILY)
     Route: 065
  8. ACETYLSALICYLIC ACID [Suspect]
     Active Substance: ASPIRIN
     Indication: PRODUCT USED FOR UNKNOWN INDICATION
     Dosage: 75 MILLIGRAM, ONCE A DAY
     Route: 065
  9. ATORVASTATIN [Suspect]
     Active Substance: ATORVASTATIN
     Indication: PRODUCT USED FOR UNKNOWN INDICATION
     Dosage: 40 MILLIGRAM, ONCE A DAY
     Route: 065

REACTIONS (18)
  - Condition aggravated [Unknown]
  - Type 2 diabetes mellitus [Unknown]
  - Hypercholesterolaemia [Unknown]
  - Left ventricular failure [Unknown]
  - Decreased appetite [Unknown]
  - Nausea [Unknown]
  - Oedema peripheral [Unknown]
  - Dyspnoea [Unknown]
  - Myocardial infarction [Unknown]
  - Hepatojugular reflux [Unknown]
  - Weight increased [Unknown]
  - Nocturia [Unknown]
  - Obesity [Unknown]
  - Acute coronary syndrome [Unknown]
  - Low density lipoprotein abnormal [Unknown]
  - Skin ulcer [Not Recovered/Not Resolved]
  - Heart rate increased [Unknown]
  - Essential hypertension [Unknown]
